FAERS Safety Report 22628486 (Version 1)
Quarter: 2023Q2

REPORT INFORMATION
  Report Type: Spontaneous
  Country: US (occurrence: US)
  Receive Date: 20230622
  Receipt Date: 20230622
  Transmission Date: 20230721
  Serious: No
  Sender: FDA-Public Use
  Company Number: US-Eisai Medical Research-EC-2023-140796

PATIENT
  Age: 78 Year
  Sex: Female
  Weight: 63.04 kg

DRUGS (11)
  1. LEQEMBI [Suspect]
     Active Substance: LECANEMAB-IRMB
     Indication: Product used for unknown indication
     Dosage: DOSE AND FREQUENCY UNKNOWN
     Route: 042
     Dates: start: 20230518
  2. CARTIA [Concomitant]
  3. TELMISARTAN [Concomitant]
     Active Substance: TELMISARTAN
  4. HYDROCHLOROTHIAZIDE [Concomitant]
     Active Substance: HYDROCHLOROTHIAZIDE
  5. OMEPRAZOLE [Concomitant]
     Active Substance: OMEPRAZOLE
  6. DULOXETINE [Concomitant]
     Active Substance: DULOXETINE
  7. CARVEDILOL [Concomitant]
     Active Substance: CARVEDILOL
  8. PRAVASTATIN [Concomitant]
     Active Substance: PRAVASTATIN
  9. FOLATE SODIUM [Concomitant]
     Active Substance: FOLATE SODIUM
  10. ASPIRIN [Concomitant]
     Active Substance: ASPIRIN
  11. HYDROCORTISONE [Concomitant]
     Active Substance: HYDROCORTISONE

REACTIONS (3)
  - Arthralgia [Recovered/Resolved]
  - Headache [Recovered/Resolved]
  - Depressed mood [Unknown]

NARRATIVE: CASE EVENT DATE: 20230501
